FAERS Safety Report 5845730-X (Version None)
Quarter: 2008Q3

REPORT INFORMATION
  Report Type: 
  Country: None (occurrence: None)
  Receive Date: 20080814
  Receipt Date: 20080807
  Transmission Date: 20090109
  Serious: Yes (Hospitalization, Other)
  Sender: FDA-Public Use
  Company Number: PHHY2008JP16427

PATIENT
  Age: 84 Year
  Sex: Female

DRUGS (1)
  1. VOLTAREN [Suspect]
     Indication: MUSCULOSKELETAL PAIN
     Route: 048

REACTIONS (10)
  - ANOREXIA [None]
  - EROSIVE DUODENITIS [None]
  - HYPOALBUMINAEMIA [None]
  - HYPOCHOLESTEROLAEMIA [None]
  - ILEAL ULCER [None]
  - JEJUNAL ULCER [None]
  - MALNUTRITION [None]
  - PROTEIN-LOSING GASTROENTEROPATHY [None]
  - SMALL INTESTINE ULCER [None]
  - WEIGHT DECREASED [None]
